FAERS Safety Report 9961835 (Version 1)
Quarter: 2014Q1

REPORT INFORMATION
  Report Type: Spontaneous
  Country: US (occurrence: None)
  Receive Date: 20140304
  Receipt Date: 20140304
  Transmission Date: 20141002
  Serious: Yes (Hospitalization)
  Sender: FDA-Public Use
  Company Number: None

PATIENT
  Age: 60 Year
  Sex: Male
  Weight: 91.9 kg

DRUGS (1)
  1. AZATHIOPRINE [Suspect]
     Indication: RESPIRATORY DISTRESS
     Route: 048
     Dates: start: 20130425, end: 20131123

REACTIONS (2)
  - Alveolitis [None]
  - Respiratory failure [None]
